FAERS Safety Report 12338889 (Version 1)
Quarter: 2016Q2

REPORT INFORMATION
  Report Type: Spontaneous
  Country: TW (occurrence: TW)
  Receive Date: 20160505
  Receipt Date: 20160505
  Transmission Date: 20160815
  Serious: Yes (Hospitalization)
  Sender: FDA-Public Use
  Company Number: TW-IMPAX LABORATORIES, INC-2016-IPXL-00479

PATIENT
  Age: 60 Year
  Sex: Female

DRUGS (4)
  1. QUETIAPINE. [Interacting]
     Active Substance: QUETIAPINE
     Dosage: 200 MG, DAILY
     Route: 065
  2. QUETIAPINE. [Interacting]
     Active Substance: QUETIAPINE
     Indication: BIPOLAR I DISORDER
     Dosage: 200 MG, DAILY
     Route: 065
  3. QUETIAPINE. [Interacting]
     Active Substance: QUETIAPINE
     Dosage: 400 MG, DAILY
     Route: 065
  4. DIVALPROEX SODIUM ER [Suspect]
     Active Substance: DIVALPROEX SODIUM
     Indication: BIPOLAR I DISORDER
     Dosage: 500 MG, DAILY
     Route: 065

REACTIONS (2)
  - Neutropenia [Recovered/Resolved]
  - Drug interaction [Recovered/Resolved]
